FAERS Safety Report 5043605-X (Version None)
Quarter: 2006Q2

REPORT INFORMATION
  Report Type: 
  Country: None (occurrence: None)
  Receive Date: 20060628
  Receipt Date: 20060621
  Transmission Date: 20061013
  Serious: Yes (Death)
  Sender: FDA-Public Use
  Company Number: 2006-03-1284

PATIENT
  Sex: Male

DRUGS (2)
  1. LORATADINE [Suspect]
     Indication: INCREASED UPPER AIRWAY SECRETION
     Dosage: ORAL
     Route: 048
  2. CLARITYN (LORATADINE) TABLETS [Concomitant]

REACTIONS (2)
  - LUNG CANCER METASTATIC [None]
  - MALIGNANT NEOPLASM PROGRESSION [None]
